FAERS Safety Report 15051456 (Version 1)
Quarter: 2018Q2

REPORT INFORMATION
  Report Type: Spontaneous
  Country: GB (occurrence: GB)
  Receive Date: 20180622
  Receipt Date: 20180622
  Transmission Date: 20180711
  Serious: Yes (Other)
  Sender: FDA-Public Use
  Company Number: GB-SCIEGEN PHARMACEUTICALS INC-2018SCILIT00388

PATIENT

DRUGS (3)
  1. HEPARIN [Suspect]
     Active Substance: HEPARIN SODIUM
     Indication: CEREBRAL ISCHAEMIA
     Dosage: UNK
     Route: 042
  2. CLOPIDOGREL [Suspect]
     Active Substance: CLOPIDOGREL BISULFATE
     Indication: CEREBRAL ISCHAEMIA
     Dosage: UNK
     Route: 065
  3. ASPIRIN. [Suspect]
     Active Substance: ASPIRIN
     Indication: CEREBRAL ISCHAEMIA
     Dosage: UNK
     Route: 065

REACTIONS (1)
  - Subarachnoid haemorrhage [Recovered/Resolved]
